FAERS Safety Report 9596739 (Version 1)
Quarter: 2013Q4

REPORT INFORMATION
  Report Type: Spontaneous
  Country: BR (occurrence: BR)
  Receive Date: 20131004
  Receipt Date: 20131004
  Transmission Date: 20140711
  Serious: Yes (Other)
  Sender: FDA-Public Use
  Company Number: BR-ASTRAZENECA-2013SE72780

PATIENT
  Sex: Female

DRUGS (7)
  1. SELOZOK [Suspect]
     Route: 048
  2. BRILINTA [Suspect]
     Route: 048
     Dates: start: 2011
  3. ASA 100MG [Concomitant]
  4. VITAMIN C [Concomitant]
     Indication: ANAEMIA
  5. VITAMIN D [Concomitant]
     Indication: ANAEMIA
  6. MONOCORDIL [Concomitant]
  7. UNSPECIFIED INJECTION [Concomitant]
     Indication: RENAL FAILURE

REACTIONS (1)
  - Dementia Alzheimer^s type [Unknown]
